FAERS Safety Report 7872917-7 (Version None)
Quarter: 2011Q4

REPORT INFORMATION
  Report Type: 
  Country: None (occurrence: None)
  Receive Date: 20111030
  Receipt Date: 20110429
  Transmission Date: 20120403
  Serious: No
  Sender: FDA-Public Use
  Company Number: US-AMGEN-KDL407557

PATIENT
  Age: 42 Year
  Sex: Female

DRUGS (3)
  1. SULFASALAZINE [Concomitant]
     Dosage: 500 MG, BID
     Dates: start: 20100301
  2. ENBREL [Suspect]
     Indication: RHEUMATOID ARTHRITIS
     Dosage: 50 MG, UNK
     Route: 058
     Dates: start: 20100419
  3. HUMIRA [Concomitant]
     Dosage: UNK UNK, QD
     Dates: start: 20100101, end: 20100101

REACTIONS (10)
  - NAUSEA [None]
  - HEADACHE [None]
  - INJECTION SITE HAEMORRHAGE [None]
  - SEASONAL ALLERGY [None]
  - VOMITING [None]
  - MEMORY IMPAIRMENT [None]
  - DRY MOUTH [None]
  - RHEUMATOID ARTHRITIS [None]
  - FATIGUE [None]
  - INJECTION SITE PAIN [None]
